FAERS Safety Report 8558793-8 (Version None)
Quarter: 2012Q3

REPORT INFORMATION
  Report Type: 
  Country: None (occurrence: None)
  Receive Date: 20120801
  Receipt Date: 20101115
  Transmission Date: 20120928
  Serious: Yes (Other)
  Sender: FDA-Public Use
  Company Number: US-BAYER-201042046NA

PATIENT
  Age: 57 Year
  Sex: Male

DRUGS (1)
  1. LEUKINE [Suspect]
     Route: 058
     Dates: start: 20100107, end: 20100107

REACTIONS (3)
  - DIZZINESS [None]
  - GRAND MAL CONVULSION [None]
  - UNRESPONSIVE TO STIMULI [None]
